FAERS Safety Report 8219092-7 (Version None)
Quarter: 2012Q1

REPORT INFORMATION
  Report Type: 
  Country: None (occurrence: None)
  Receive Date: 20120319
  Receipt Date: 20120307
  Transmission Date: 20120608
  Serious: Yes (Death)
  Sender: FDA-Public Use
  Company Number: CN-PFIZER INC-2012002626

PATIENT
  Age: 48 Year
  Sex: Male

DRUGS (2)
  1. GALENIC /HYDROCHLOROTHIAZIDE/IRBESARTAN/ [Concomitant]
     Indication: HYPERTENSION
     Dosage: 150 MG, 1X/DAY
     Route: 048
  2. AXITINIB [Suspect]
     Indication: HEPATIC NEOPLASM MALIGNANT
     Dosage: 5 MG, 2X/DAY
     Route: 048
     Dates: start: 20111221, end: 20120103

REACTIONS (2)
  - HEPATIC NEOPLASM MALIGNANT [None]
  - DISEASE PROGRESSION [None]
